FAERS Safety Report 14937597 (Version 4)
Quarter: 2019Q2

REPORT INFORMATION
  Report Type: Report from Study
  Country: AR (occurrence: AR)
  Receive Date: 20180525
  Receipt Date: 20190617
  Transmission Date: 20190711
  Serious: Yes (Other)
  Sender: FDA-Public Use
  Company Number: PHHY2018AR006423

PATIENT
  Sex: Female

DRUGS (11)
  1. HIDROCORTISON [Concomitant]
     Active Substance: HYDROCORTISONE
     Indication: GROWTH HORMONE DEFICIENCY
  2. OMNITROPE [Suspect]
     Active Substance: SOMATROPIN
     Indication: THYROID HORMONES DECREASED
  3. OMNITROPE [Suspect]
     Active Substance: SOMATROPIN
     Indication: GROWTH HORMONE DEFICIENCY
  4. HIDROCORTISON [Concomitant]
     Active Substance: HYDROCORTISONE
     Indication: CORTISOL DEFICIENCY
  5. LEVOTHYROXINE. [Concomitant]
     Active Substance: LEVOTHYROXINE
     Indication: HYPOGLYCAEMIA
  6. OMNITROPE [Suspect]
     Active Substance: SOMATROPIN
     Indication: SEPTO-OPTIC DYSPLASIA
     Dosage: 0.3 MG, QN
     Route: 065
     Dates: start: 201602
  7. HIDROCORTISON [Concomitant]
     Active Substance: HYDROCORTISONE
     Indication: THYROID HORMONES DECREASED
     Dosage: 2.5 MG, QD
     Route: 048
  8. LEVOTHYROXINE. [Concomitant]
     Active Substance: LEVOTHYROXINE
     Indication: THYROID HORMONES DECREASED
     Dosage: 25 UG, QD
     Route: 065
     Dates: start: 201602
  9. LEVOTHYROXINE. [Concomitant]
     Active Substance: LEVOTHYROXINE
     Indication: GROWTH HORMONE DEFICIENCY
  10. OMNITROPE [Suspect]
     Active Substance: SOMATROPIN
     Indication: CORTISOL DEFICIENCY
  11. LEVOTHYROXINE. [Concomitant]
     Active Substance: LEVOTHYROXINE
     Indication: CORTISOL DEFICIENCY

REACTIONS (7)
  - Product distribution issue [Unknown]
  - Product use in unapproved indication [Unknown]
  - Febrile convulsion [Unknown]
  - Pyrexia [Unknown]
  - Expired product administered [Unknown]
  - Secretion discharge [Unknown]
  - Injection site bruising [Recovering/Resolving]
